FAERS Safety Report 8966890 (Version 2)
Quarter: 2012Q4

REPORT INFORMATION
  Report Type: 
  Country: US (occurrence: US)
  Receive Date: 20121217
  Receipt Date: 20121221
  Transmission Date: 20130627
  Serious: Yes (Death)
  Sender: FDA-Public Use
  Company Number: US-VIROPHARMA INCORPORATED-20121205CINRY3715

PATIENT
  Age: 37 None
  Sex: Female

DRUGS (5)
  1. CINRYZE (C1 ESTERASE INHIBITOR (HUMAN)) [Suspect]
     Indication: HEREDITARY ANGIOEDEMA
     Dosage: unknown
     Dates: start: 201011
  2. VICODIN [Concomitant]
     Indication: PAIN
     Dosage: UNKNOWN
     Route: 065
  3. DILAUDID [Concomitant]
     Indication: PAIN
     Dosage: UNKNOWN
     Route: 065
  4. KLONOPIN [Concomitant]
     Indication: ANXIETY
     Dosage: UNKNOWN
     Route: 065
  5. BENADRYL [Concomitant]
     Indication: PRODUCT USED FOR UNKNOWN INDICATION
     Dosage: UNKNOWN
     Route: 065

REACTIONS (3)
  - Cardio-respiratory arrest [Fatal]
  - Inappropriate schedule of drug administration [Not Recovered/Not Resolved]
  - Therapy regimen changed [Not Recovered/Not Resolved]
